FAERS Safety Report 19610545 (Version 4)
Quarter: 2021Q4

REPORT INFORMATION
  Report Type: Report from Study
  Country: US (occurrence: US)
  Receive Date: 20210726
  Receipt Date: 20211102
  Transmission Date: 20220303
  Serious: No
  Sender: FDA-Public Use
  Company Number: NVSC2021US168230

PATIENT
  Sex: Male

DRUGS (1)
  1. ENTRESTO [Suspect]
     Active Substance: SACUBITRIL\VALSARTAN
     Indication: Product used for unknown indication
     Dosage: 50 MG, BID (24/26 MG)
     Route: 048
     Dates: start: 2020

REACTIONS (5)
  - Hypoacusis [Unknown]
  - Weight increased [Unknown]
  - Salt craving [Recovering/Resolving]
  - Confusional state [Recovering/Resolving]
  - Hypertension [Unknown]
